FAERS Safety Report 4346801-X (Version None)
Quarter: 2004Q1

REPORT INFORMATION
  Report Type: 
  Country: None (occurrence: None)
  Receive Date: 20040325
  Receipt Date: 20040205
  Transmission Date: 20041129
  Serious: No
  Sender: FDA-Public Use
  Company Number: USA030741054

PATIENT
  Age: 78 Year
  Sex: Female
  Weight: 64 kg

DRUGS (1)
  1. FORTEO [Suspect]
     Indication: OSTEOPOROSIS
     Dosage: 20 UG/DAY
     Dates: start: 20030702

REACTIONS (4)
  - CREPITATIONS [None]
  - HEADACHE [None]
  - INJECTION SITE BURNING [None]
  - PALPITATIONS [None]
